FAERS Safety Report 17960011 (Version 1)
Quarter: 2020Q2

REPORT INFORMATION
  Report Type: Spontaneous
  Country: CO (occurrence: CO)
  Receive Date: 20200629
  Receipt Date: 20200629
  Transmission Date: 20200714
  Serious: Yes (Other)
  Sender: FDA-Public Use
  Company Number: CO-BIOMARINAP-CO-2020-130948

PATIENT
  Sex: Male
  Weight: 32 kg

DRUGS (1)
  1. NAGLAZYME [Suspect]
     Active Substance: GALSULFASE
     Indication: MUCOPOLYSACCHARIDOSIS VI
     Dosage: 35 MILLIGRAM
     Route: 042
     Dates: start: 20070407

REACTIONS (5)
  - Cardiac failure [Unknown]
  - Pulmonary hypertension [Unknown]
  - Sleep apnoea syndrome [Unknown]
  - Incorrect product administration duration [Unknown]
  - Mobility decreased [Unknown]

NARRATIVE: CASE EVENT DATE: 2012
